FAERS Safety Report 5302726-4 (Version None)
Quarter: 2007Q2

REPORT INFORMATION
  Report Type: 
  Country: None (occurrence: None)
  Receive Date: 20070419
  Receipt Date: 20070409
  Transmission Date: 20071010
  Serious: Yes (Life-Threatening, Other)
  Sender: FDA-Public Use
  Company Number: JP-PFIZER INC-2007028179

PATIENT
  Sex: Male
  Weight: 72.6 kg

DRUGS (3)
  1. DETRUSITOL SR [Suspect]
     Indication: POLLAKIURIA
     Route: 048
     Dates: start: 20061028, end: 20070322
  2. ALL OTHER THERAPEUTIC PRODUCTS [Suspect]
  3. GLYBURIDE [Concomitant]
     Route: 048

REACTIONS (5)
  - ABNORMAL BEHAVIOUR [None]
  - AMNESIA [None]
  - BENIGN PROSTATIC HYPERPLASIA [None]
  - FALL [None]
  - SLEEP WALKING [None]
